FAERS Safety Report 9376453 (Version 4)
Quarter: 2014Q1

REPORT INFORMATION
  Report Type: Spontaneous
  Country: US (occurrence: US)
  Receive Date: 20130701
  Receipt Date: 20140324
  Transmission Date: 20141002
  Serious: Yes (Other)
  Sender: FDA-Public Use
  Company Number: US-PFIZER INC-2013191334

PATIENT
  Age: 86 Year
  Sex: Male
  Weight: 70.3 kg

DRUGS (6)
  1. VFEND [Suspect]
     Indication: BRONCHOPULMONARY ASPERGILLOSIS
     Dosage: 200 MG,  ONE TAB Q 12 HOURS
     Route: 048
     Dates: start: 20120905, end: 201403
  2. VFEND [Suspect]
     Dosage: 4 MG/KG, 2X/DAY
     Route: 048
     Dates: start: 20120905
  3. DIOVAN [Concomitant]
     Indication: SYSTOLIC HYPERTENSION
     Dosage: 80 MG, 2X/DAY
  4. PRAMIPEXOLE [Concomitant]
     Dosage: 1 MG, QHS
  5. ROSUVASTATIN [Concomitant]
     Indication: HYPERCHOLESTEROLAEMIA
     Dosage: 10 MG, QHS
  6. NEBIVOLOL [Concomitant]
     Indication: HYPERTENSION
     Dosage: 5 MG, DAILY

REACTIONS (12)
  - Hallucination, visual [Not Recovered/Not Resolved]
  - Visual impairment [Not Recovered/Not Resolved]
  - Oedema peripheral [Unknown]
  - Photosensitivity reaction [Not Recovered/Not Resolved]
  - Sunburn [Unknown]
  - Rash generalised [Unknown]
  - Rash [Unknown]
  - Musculoskeletal discomfort [Unknown]
  - Lip haemorrhage [Unknown]
  - Scar [Unknown]
  - Pruritus [Unknown]
  - Swelling [Unknown]
